FAERS Safety Report 22041846 (Version 6)
Quarter: 2025Q2

REPORT INFORMATION
  Report Type: Spontaneous
  Country: FR (occurrence: FR)
  Receive Date: 20230227
  Receipt Date: 20250509
  Transmission Date: 20250716
  Serious: Yes (Life-Threatening, Hospitalization, Other)
  Sender: VERTEX
  Company Number: None

PATIENT
  Age: 28 Year
  Sex: Female
  Weight: 50 kg

DRUGS (11)
  1. ELEXACAFTOR\IVACAFTOR\TEZACAFTOR [Suspect]
     Active Substance: ELEXACAFTOR\IVACAFTOR\TEZACAFTOR
     Indication: Cystic fibrosis
     Dosage: 2 TABS (75MG IVA/50MG TEZA /100MG ELEXA) PER DAY
     Route: 048
     Dates: start: 20211101
  2. ELEXACAFTOR\IVACAFTOR\TEZACAFTOR [Suspect]
     Active Substance: ELEXACAFTOR\IVACAFTOR\TEZACAFTOR
     Dosage: 1 PILL IN AM, REDUCED DOSE
     Route: 048
  3. ELEXACAFTOR\IVACAFTOR\TEZACAFTOR [Suspect]
     Active Substance: ELEXACAFTOR\IVACAFTOR\TEZACAFTOR
     Dosage: 2 PILLS IN AM
     Route: 048
  4. KALYDECO [Suspect]
     Active Substance: IVACAFTOR
     Indication: Cystic fibrosis
     Dosage: 150 MILLIGRAM, QD
     Route: 048
     Dates: start: 20211101, end: 20221014
  5. .ALPHA.-TOCOPHEROL ACETATE, D- [Concomitant]
     Active Substance: .ALPHA.-TOCOPHEROL ACETATE, D-
  6. ZITHROMAX [Concomitant]
     Active Substance: AZITHROMYCIN DIHYDRATE
  7. CHOLECALCIFEROL [Concomitant]
     Active Substance: CHOLECALCIFEROL
     Route: 048
  8. PANCRELIPASE [Concomitant]
     Active Substance: PANCRELIPASE
  9. ISOTRETINOIN [Concomitant]
     Active Substance: ISOTRETINOIN
  10. PANCREATIN [Concomitant]
     Active Substance: PANCRELIPASE
  11. AZITHROMYCIN [Concomitant]
     Active Substance: AZITHROMYCIN

REACTIONS (18)
  - Suicide attempt [Not Recovered/Not Resolved]
  - Suicidal ideation [Recovered/Resolved]
  - Substance use [Unknown]
  - Alcohol withdrawal syndrome [Unknown]
  - Alcohol use disorder [Unknown]
  - Decreased appetite [Unknown]
  - Anxiety [Unknown]
  - Euphoric mood [Unknown]
  - Self esteem decreased [Unknown]
  - Weight decreased [Unknown]
  - Anhedonia [Not Recovered/Not Resolved]
  - Emotional distress [Unknown]
  - Irritability [Not Recovered/Not Resolved]
  - Feeling guilty [Unknown]
  - Affective disorder [Unknown]
  - Depression [Unknown]
  - Sleep disorder [Unknown]
  - Insomnia [Not Recovered/Not Resolved]

NARRATIVE: CASE EVENT DATE: 20211201
